FAERS Safety Report 4309434-7 (Version None)
Quarter: 2004Q1

REPORT INFORMATION
  Report Type: 
  Country: None (occurrence: None)
  Receive Date: 20040301
  Receipt Date: 20040217
  Transmission Date: 20041129
  Serious: Yes (Hospitalization, Other)
  Sender: FDA-Public Use
  Company Number: 2004011355

PATIENT
  Age: 74 Year
  Sex: Male

DRUGS (6)
  1. LIPITOR [Suspect]
     Indication: HYPERCHOLESTEROLAEMIA
     Dosage: 5 MG (UNKNOWN), ORAL
     Route: 048
     Dates: start: 20031108, end: 20031222
  2. CARDENALIN (DOXAZOSIN) [Suspect]
     Indication: HYPERTENSION
     Dosage: 4 MG UNKNOWN), ORAL
     Route: 048
     Dates: start: 20031108, end: 20040121
  3. NIFEDIPINE [Suspect]
     Indication: HYPERTENSION
     Dosage: 20 MG (UNKNOWN), ORAL
     Route: 048
     Dates: start: 20031108, end: 20031222
  4. FAMOTIDINE [Suspect]
     Indication: GASTRITIS
     Dosage: 10 MG (UNKNOWN), ORAL
     Route: 048
     Dates: start: 20031108
  5. DILTIAZEM HYDROCHLORIDE [Suspect]
     Indication: HYPERTENSION
     Dosage: 100 MG , ORAL
     Route: 047
     Dates: start: 20031108, end: 20031222
  6. FUROSEMIDE [Suspect]
     Indication: RENAL FAILURE
     Dosage: 40 MG, ORAL
     Route: 048
     Dates: start: 20031113

REACTIONS (23)
  - ALANINE AMINOTRANSFERASE INCREASED [None]
  - ASPARTATE AMINOTRANSFERASE INCREASED [None]
  - BLOOD ALKALINE PHOSPHATASE INCREASED [None]
  - BLOOD CALCIUM INCREASED [None]
  - BLOOD LACTATE DEHYDROGENASE INCREASED [None]
  - BLOOD POTASSIUM DECREASED [None]
  - BLOOD SODIUM DECREASED [None]
  - C-REACTIVE PROTEIN INCREASED [None]
  - DIABETES MELLITUS [None]
  - DIALYSIS [None]
  - DRUG HYPERSENSITIVITY [None]
  - ERYTHEMA [None]
  - FACE OEDEMA [None]
  - HYPERURICAEMIA [None]
  - HYPOGLYCAEMIA [None]
  - LIVER DISORDER [None]
  - OEDEMA PERIPHERAL [None]
  - PLATELET COUNT DECREASED [None]
  - PURPURA [None]
  - PYREXIA [None]
  - RASH GENERALISED [None]
  - RENAL FAILURE [None]
  - WHITE BLOOD CELL COUNT INCREASED [None]
